FAERS Safety Report 14815112 (Version 2)
Quarter: 2018Q2

REPORT INFORMATION
  Report Type: Spontaneous
  Country: JP (occurrence: JP)
  Receive Date: 20180426
  Receipt Date: 20180502
  Transmission Date: 20180711
  Serious: Yes (Hospitalization, Other)
  Sender: FDA-Public Use
  Company Number: JP-JNJFOC-20180427005

PATIENT
  Age: 68 Year
  Sex: Female
  Weight: 68 kg

DRUGS (2)
  1. NEOPERIDOL [Suspect]
     Active Substance: HALOPERIDOL
     Indication: SCHIZOPHRENIA
     Route: 030
  2. NEOPERIDOL [Suspect]
     Active Substance: HALOPERIDOL
     Indication: SCHIZOPHRENIA
     Route: 030
     Dates: start: 1998

REACTIONS (2)
  - Erythema multiforme [Recovered/Resolved]
  - Schizophrenia [Unknown]

NARRATIVE: CASE EVENT DATE: 20170417
